FAERS Safety Report 13450199 (Version 2)
Quarter: 2017Q3

REPORT INFORMATION
  Report Type: Report from Study
  Country: None (occurrence: JP)
  Receive Date: 20170417
  Receipt Date: 20170811
  Transmission Date: 20171127
  Serious: Yes (Death, Life-Threatening, Hospitalization)
  Sender: FDA-Public Use
  Company Number: JP-BAUSCH-BL-2017-010015

PATIENT
  Age: 72 Year
  Sex: Male

DRUGS (7)
  1. LACTULOSE. [Concomitant]
     Active Substance: LACTULOSE
     Indication: HYPERAMMONAEMIA
     Route: 048
     Dates: start: 20170126, end: 20170210
  2. TAKEPRON [Concomitant]
     Active Substance: LANSOPRAZOLE
     Indication: GASTRIC ULCER
     Route: 048
     Dates: start: 20170126, end: 20170210
  3. DOPS [Concomitant]
     Active Substance: DROXIDOPA
     Indication: DIALYSIS
     Route: 048
     Dates: start: 20170126, end: 20170210
  4. WARFARIN [Concomitant]
     Active Substance: WARFARIN
     Indication: AORTIC VALVE REPLACEMENT
     Route: 048
     Dates: start: 20170126, end: 20170210
  5. RIFXIMA TABLETS 200MG [Suspect]
     Active Substance: RIFAXIMIN
     Indication: HYPERAMMONAEMIA
     Route: 048
     Dates: start: 20170126, end: 20170210
  6. MEYLON [Concomitant]
     Active Substance: SODIUM BICARBONATE
     Indication: DIZZINESS
     Route: 048
     Dates: start: 20170126, end: 20170210
  7. ARGIMATE [Concomitant]
     Indication: HYPERAMMONAEMIA
     Route: 042
     Dates: start: 20170126, end: 20170210

REACTIONS (5)
  - Hyperkalaemia [Unknown]
  - Lower limb fracture [Unknown]
  - Multiple organ dysfunction syndrome [Fatal]
  - Shock [Recovered/Resolved]
  - Melaena [Fatal]

NARRATIVE: CASE EVENT DATE: 20170130
